FAERS Safety Report 7282431-8 (Version None)
Quarter: 2011Q1

REPORT INFORMATION
  Report Type: 
  Country: None (occurrence: None)
  Receive Date: 20110209
  Receipt Date: 20110201
  Transmission Date: 20110831
  Serious: Yes (Death, Hospitalization)
  Sender: FDA-Public Use
  Company Number: US-BRISTOL-MYERS SQUIBB COMPANY-15264112

PATIENT
  Age: 69 Year
  Sex: Female
  Weight: 54 kg

DRUGS (24)
  1. DOCUSATE [Concomitant]
  2. PROCHLORPERAZINE [Concomitant]
  3. ENOXAPARIN SODIUM [Concomitant]
  4. CETUXIMAB [Suspect]
     Indication: NON-SMALL CELL LUNG CANCER
     Dosage: RECENT INF:13AUG10 NO OF INF:4 HELD ON 20AUG10
     Route: 042
     Dates: start: 20100722, end: 20100813
  5. LOVENOX [Concomitant]
     Indication: PULMONARY EMBOLISM
     Route: 058
     Dates: start: 20100726, end: 20100811
  6. HYDROCHLOROTHIAZIDE [Concomitant]
  7. ALBUTEROL [Concomitant]
     Dates: start: 20100823
  8. ACETAMINOPHEN [Concomitant]
     Route: 065
  9. OXYCODONE HCL [Concomitant]
  10. OMEPRAZOLE [Concomitant]
     Dates: start: 20100823
  11. CARBOPLATIN [Suspect]
     Indication: NON-SMALL CELL LUNG CANCER
     Dosage: RECENT INF:13AUG10 NO OF INF:2 HELD ON 20AUG10
     Route: 042
     Dates: start: 20100722, end: 20100813
  12. MAGNESIUM SULFATE [Concomitant]
  13. FUROSEMIDE [Concomitant]
  14. EVISTA [Concomitant]
  15. DEXAMETHASONE [Concomitant]
     Dates: start: 20100812
  16. GEMCITABINE [Suspect]
     Indication: NON-SMALL CELL LUNG CANCER
     Dosage: RECENT INF:13AUG10 NO OF INF:3 HELD ON 20AUG10
     Route: 042
     Dates: start: 20100722, end: 20100813
  17. ATIVAN [Concomitant]
     Dates: start: 20100802
  18. AMLODIPINE [Concomitant]
     Route: 065
  19. POTASSIUM CHLORIDE [Concomitant]
  20. GABAPENTIN [Concomitant]
     Route: 065
  21. MULTIPLE VITAMINS [Concomitant]
     Dates: start: 20100823
  22. LOVENOX [Concomitant]
     Indication: DEEP VEIN THROMBOSIS
     Route: 058
     Dates: start: 20100726, end: 20100811
  23. VITAMIN D [Concomitant]
     Dates: start: 20100823
  24. COUMADIN [Concomitant]
     Dates: start: 20100702

REACTIONS (2)
  - DEATH [None]
  - ARTERIAL THROMBOSIS [None]
